FAERS Safety Report 4778722-2 (Version None)
Quarter: 2005Q3

REPORT INFORMATION
  Report Type: 
  Country: None (occurrence: None)
  Receive Date: 20050922
  Receipt Date: 20050908
  Transmission Date: 20060218
  Serious: Yes (Hospitalization, Other)
  Sender: FDA-Public Use
  Company Number: 2005129527

PATIENT
  Age: 40 Year
  Sex: Female

DRUGS (4)
  1. SERTRALINE HCL [Suspect]
     Indication: DEPRESSIVE SYMPTOM
     Dosage: 150 MG
  2. LITHIUM CARBONATE [Suspect]
     Indication: SCHIZOAFFECTIVE DISORDER
     Dosage: 1000 MG
  3. LEVOMEPROMAZINE (LEVOMEPROMAZINE) [Suspect]
     Indication: SCHIZOAFFECTIVE DISORDER
  4. MIANSERIN (MIANSERIN) [Suspect]
     Indication: DEPRESSIVE SYMPTOM
     Dosage: 90 MG

REACTIONS (13)
  - ANOREXIA [None]
  - BLOOD PRESSURE INCREASED [None]
  - CIRCADIAN RHYTHM SLEEP DISORDER [None]
  - DECREASED ACTIVITY [None]
  - DEPRESSED MOOD [None]
  - DIARRHOEA [None]
  - ELEVATED MOOD [None]
  - HYPERHIDROSIS [None]
  - INSOMNIA [None]
  - IRRITABILITY [None]
  - SEROTONIN SYNDROME [None]
  - SUICIDAL IDEATION [None]
  - THERAPY NON-RESPONDER [None]
